FAERS Safety Report 9768075 (Version 2)
Quarter: 2014Q1

REPORT INFORMATION
  Report Type: Spontaneous
  Country: IT (occurrence: IT)
  Receive Date: 20131217
  Receipt Date: 20140109
  Transmission Date: 20141002
  Serious: Yes (Hospitalization)
  Sender: FDA-Public Use
  Company Number: IT-009507513-1312ITA005540

PATIENT
  Age: 75 Year
  Sex: Female

DRUGS (1)
  1. REMERON [Suspect]
     Dosage: 10 ML
     Route: 048
     Dates: start: 20120601, end: 20120601

REACTIONS (1)
  - Sopor [Recovered/Resolved]
